FAERS Safety Report 16202623 (Version 1)
Quarter: 2019Q2

REPORT INFORMATION
  Report Type: Spontaneous
  Country: US (occurrence: US)
  Receive Date: 20190416
  Receipt Date: 20190416
  Transmission Date: 20190711
  Serious: Yes (Death)
  Sender: FDA-Public Use
  Company Number: US-PFIZER INC-2019161892

PATIENT
  Sex: Female

DRUGS (1)
  1. VECURONIUM BROMIDE. [Suspect]
     Active Substance: VECURONIUM BROMIDE
     Dosage: UNK

REACTIONS (2)
  - Product administration error [Fatal]
  - Respiratory arrest [Fatal]
